FAERS Safety Report 17355478 (Version 1)
Quarter: 2020Q1

REPORT INFORMATION
  Report Type: Spontaneous
  Country: GB (occurrence: GB)
  Receive Date: 20200131
  Receipt Date: 20200131
  Transmission Date: 20200409
  Serious: Yes (Other)
  Sender: FDA-Public Use
  Company Number: GB-PFIZER INC-2020038535

PATIENT
  Age: 62 Year

DRUGS (2)
  1. DULOXETINE. [Suspect]
     Active Substance: DULOXETINE
     Dosage: 60 MG, 1X/DAY
     Route: 048
  2. PREGABALIN. [Suspect]
     Active Substance: PREGABALIN
     Dosage: 200 MG, 1X/DAY (75MG INCREASED TO 100MG)
     Route: 048

REACTIONS (1)
  - Hepatic enzyme increased [Recovering/Resolving]
